FAERS Safety Report 10081067 (Version 2)
Quarter: 2014Q2

REPORT INFORMATION
  Report Type: Spontaneous
  Country: CN (occurrence: None)
  Receive Date: 20140414
  Receipt Date: 20140509
  Transmission Date: 20141212
  Serious: No
  Sender: FDA-Public Use
  Company Number: 7279415

PATIENT
  Age: 45 Year
  Sex: Male

DRUGS (2)
  1. EUTHYROX 50 MCG [Suspect]
     Indication: HYPERTHYROIDISM
     Dosage: 2 DF (2 DEF, 1 IN 1 D)
     Route: 048
  2. THYROZOL [Suspect]
     Route: 048

REACTIONS (7)
  - Cor pulmonale acute [None]
  - Peripheral swelling [None]
  - Wrong drug administered [None]
  - Cachexia [None]
  - Asthma [None]
  - Swelling face [None]
  - Cachexia [None]
